FAERS Safety Report 15849374 (Version 2)
Quarter: 2019Q1

REPORT INFORMATION
  Report Type: Spontaneous
  Country: CA (occurrence: CA)
  Receive Date: 20190121
  Receipt Date: 20190325
  Transmission Date: 20190417
  Serious: Yes (Other)
  Sender: FDA-Public Use
  Company Number: CA-SAKK-2019SA011855AA

PATIENT
  Sex: Female

DRUGS (7)
  1. METHOTREXATE. [Concomitant]
     Active Substance: METHOTREXATE
     Dosage: 25 MG, QW
  2. SULFASALAZINE. [Concomitant]
     Active Substance: SULFASALAZINE
  3. XELJANZ [Concomitant]
     Active Substance: TOFACITINIB CITRATE
     Indication: RHEUMATOID ARTHRITIS
     Dosage: 5 MG, BID
     Route: 048
     Dates: start: 20190223
  4. PLAQUENIL [Suspect]
     Active Substance: HYDROXYCHLOROQUINE SULFATE
     Dosage: 200 MG ALTERNATING WITH 400MG PER DAY
  5. ARAVA [Suspect]
     Active Substance: LEFLUNOMIDE
     Dosage: 20 MG, QD
  6. NAPROXEN. [Concomitant]
     Active Substance: NAPROXEN
  7. GOLD [Concomitant]
     Active Substance: GOLD

REACTIONS (3)
  - Rheumatoid arthritis [Unknown]
  - Therapeutic response decreased [Unknown]
  - Carpal tunnel syndrome [Unknown]
